FAERS Safety Report 5387777-6 (Version None)
Quarter: 2007Q3

REPORT INFORMATION
  Report Type: 
  Country: None (occurrence: None)
  Receive Date: 20070712
  Receipt Date: 20070626
  Transmission Date: 20080115
  Serious: Yes (Other)
  Sender: FDA-Public Use
  Company Number: DSA_30178_2007

PATIENT
  Sex: Female

DRUGS (4)
  1. DILZEM /00489701/ (DILZEM) (NOT SPECIFIED) [Suspect]
     Dosage: (300 MG QD ORAL)
     Route: 048
  2. DILZEM /00489701/ (DILZEM) (NOT SPECIFIED) [Suspect]
     Dosage: (120 MG QD ORAL)
     Route: 048
  3. EZETROL [Concomitant]
  4. EUTHYROX [Concomitant]

REACTIONS (2)
  - BLOOD PRESSURE INCREASED [None]
  - DIABETES MELLITUS [None]
